FAERS Safety Report 4796536-4 (Version None)
Quarter: 2005Q4

REPORT INFORMATION
  Report Type: 
  Country: None (occurrence: None)
  Receive Date: 20051011
  Receipt Date: 20040818
  Transmission Date: 20060501
  Serious: Yes (Hospitalization)
  Sender: FDA-Public Use
  Company Number: 2004-BP-06829BP

PATIENT
  Age: 53 Year
  Sex: Female

DRUGS (6)
  1. CATAPRES [Suspect]
     Indication: HYPERTENSION
     Dosage: 0.2 MG (5 MG,1 PATCH Q WEEK), TO
     Route: 061
     Dates: start: 20030101
  2. DIOVAN HCT (CO-DIOVAN) [Concomitant]
  3. CELEBREX [Concomitant]
  4. FLEXERIL [Concomitant]
  5. MOBIC [Concomitant]
  6. ULTRACET (ULTRACET) [Concomitant]

REACTIONS (1)
  - BLOOD PRESSURE INCREASED [None]
